FAERS Safety Report 5418823-9 (Version None)
Quarter: 2007Q3

REPORT INFORMATION
  Report Type: 
  Country: None (occurrence: None)
  Receive Date: 20070718
  Receipt Date: 20061025
  Transmission Date: 20080115
  Serious: Yes (Hospitalization, Other)
  Sender: FDA-Public Use
  Company Number: 2006089361

PATIENT
  Age: 74 Year
  Sex: Male
  Weight: 104.3273 kg

DRUGS (10)
  1. CELEBREX [Suspect]
     Indication: OSTEOARTHRITIS
     Dosage: 200 MG (100 MG, 2 IN 1 D)
     Dates: end: 20060101
  2. PROPAFENONE HCL [Concomitant]
  3. CHLORTHALIDONE [Concomitant]
  4. DIGOXIN [Concomitant]
  5. LISINOPRIL [Concomitant]
  6. ACETAMINOPHEN [Concomitant]
  7. AMBIEN [Concomitant]
  8. NASAL DECONGESTANTS FOR SYSTEMIC USE (NASAL DECONGESTANTS FOR SYSTEMIC [Concomitant]
  9. PSEUDOEPHEDRINE HCL [Concomitant]
  10. LORATADINE [Concomitant]

REACTIONS (1)
  - GASTROINTESTINAL HAEMORRHAGE [None]
